FAERS Safety Report 6443832-0 (Version None)
Quarter: 2009Q4

REPORT INFORMATION
  Report Type: 
  Country: None (occurrence: None)
  Receive Date: 20091113
  Receipt Date: 20091029
  Transmission Date: 20100525
  Serious: Yes (Other)
  Sender: FDA-Public Use
  Company Number: AUR-APL-2009-01221

PATIENT
  Age: 82 Year
  Sex: Male
  Weight: 86.18 kg

DRUGS (3)
  1. METFORMIN 500MG TABLET [Suspect]
     Indication: DIABETES MELLITUS
     Dosage: 500MG, DAILY, ORAL
     Route: 048
     Dates: start: 20060101, end: 20080101
  2. EPOETIN ALFA (PROCRIT) [Concomitant]
  3. VITAMINS [Concomitant]

REACTIONS (6)
  - COUGH [None]
  - DIARRHOEA [None]
  - FOOD ALLERGY [None]
  - HAEMOGLOBIN DECREASED [None]
  - PROTEINURIA [None]
  - WEIGHT DECREASED [None]
